FAERS Safety Report 11287000 (Version 1)
Quarter: 2015Q3

REPORT INFORMATION
  Report Type: Spontaneous
  Country: US (occurrence: US)
  Receive Date: 20150721
  Receipt Date: 20150721
  Transmission Date: 20151125
  Serious: No
  Sender: FDA-Public Use
  Company Number: US-BIOGENIDEC-2015BI098881

PATIENT
  Age: 44 Year
  Sex: Female
  Weight: 77 kg

DRUGS (9)
  1. ASPIRIN. [Concomitant]
     Active Substance: ASPIRIN
  2. ESTRADIOL. [Concomitant]
     Active Substance: ESTRADIOL
  3. TECFIDERA [Suspect]
     Active Substance: DIMETHYL FUMARATE
     Indication: MULTIPLE SCLEROSIS
     Route: 048
     Dates: start: 201301
  4. BIOTIN [Concomitant]
     Active Substance: BIOTIN
  5. ALPRAZOLAM. [Concomitant]
     Active Substance: ALPRAZOLAM
  6. AMPYRA [Concomitant]
     Active Substance: DALFAMPRIDINE
     Indication: GAIT DISTURBANCE
     Route: 048
  7. TRAZODONE [Concomitant]
     Active Substance: TRAZODONE HYDROCHLORIDE
  8. VITAMIN D [Concomitant]
     Active Substance: CHOLECALCIFEROL
  9. SIMVASTATINE [Concomitant]
     Active Substance: SIMVASTATIN

REACTIONS (1)
  - Depression [Recovered/Resolved]

NARRATIVE: CASE EVENT DATE: 2013
